FAERS Safety Report 7554116-1 (Version None)
Quarter: 2011Q2

REPORT INFORMATION
  Report Type: 
  Country: None (occurrence: None)
  Receive Date: 20110617
  Receipt Date: 20110610
  Transmission Date: 20111010
  Serious: Yes (Death)
  Sender: FDA-Public Use
  Company Number: US-ENDO PHARMACEUTICALS INC.-OPER20110131

PATIENT
  Sex: Male

DRUGS (2)
  1. OPANA ER [Suspect]
     Indication: DRUG ABUSE
     Dosage: 40 MG
     Route: 065
     Dates: start: 20110601
  2. ALCOHOL [Suspect]
     Indication: DRUG ABUSE
     Dosage: UNK
     Route: 048
     Dates: start: 20110601

REACTIONS (1)
  - DRUG ABUSE [None]
